FAERS Safety Report 24318618 (Version 4)
Quarter: 2024Q4

REPORT INFORMATION
  Report Type: Spontaneous
  Country: US (occurrence: US)
  Receive Date: 20240913
  Receipt Date: 20241227
  Transmission Date: 20250115
  Serious: Yes (Life-Threatening, Hospitalization, Other)
  Sender: SANDOZ
  Company Number: US-SANDOZ-SDZ2024US078959

PATIENT
  Age: 0 Year
  Sex: Male
  Weight: 2.855 kg

DRUGS (10)
  1. AMITRIPTYLINE [Suspect]
     Active Substance: AMITRIPTYLINE
     Indication: Migraine prophylaxis
     Dosage: 40-50 MG, QD
     Route: 065
     Dates: start: 20231115
  2. ADVIL [Suspect]
     Active Substance: IBUPROFEN
     Indication: Migraine prophylaxis
     Dosage: 500 MG, PRN
     Route: 065
  3. BOTOX [Suspect]
     Active Substance: ONABOTULINUMTOXINA
     Indication: Migraine prophylaxis
     Dosage: 10 DF,Q 1-12 WEEKS
     Route: 065
     Dates: start: 20231016
  4. FROVATRIPTAN [Suspect]
     Active Substance: FROVATRIPTAN
     Indication: Migraine prophylaxis
     Dosage: 5 - 25 MG PRN
     Route: 065
  5. LIDOCAINE [Suspect]
     Active Substance: LIDOCAINE
     Indication: Migraine prophylaxis
     Dosage: 100 UG, Q2W
     Route: 065
     Dates: start: 20240118
  6. MAXALT [Suspect]
     Active Substance: RIZATRIPTAN BENZOATE
     Indication: Migraine prophylaxis
     Dosage: 10 MG, PRN
     Route: 065
  7. NURTEC ODT [Suspect]
     Active Substance: RIMEGEPANT SULFATE
     Indication: Migraine prophylaxis
     Dosage: 75 MG, QOD
     Route: 065
     Dates: start: 202208, end: 20240118
  8. NURTEC ODT [Suspect]
     Active Substance: RIMEGEPANT SULFATE
     Dosage: 75 MG, PRN
     Route: 065
  9. PROPRANOLOL [Suspect]
     Active Substance: PROPRANOLOL HYDROCHLORIDE
     Indication: Migraine prophylaxis
     Dosage: 20-30 MG, BID
     Route: 065
     Dates: start: 20240118
  10. TYLENOL [Suspect]
     Active Substance: ACETAMINOPHEN
     Indication: Migraine
     Dosage: 1000 -2000 MG, PRN
     Route: 065

REACTIONS (4)
  - Cerebral infarction [Recovering/Resolving]
  - Peripheral artery thrombosis [Recovering/Resolving]
  - Factor V Leiden mutation [Unknown]
  - Supraventricular tachycardia [Unknown]

NARRATIVE: CASE EVENT DATE: 20240712
